FAERS Safety Report 11394322 (Version 2)
Quarter: 2015Q4

REPORT INFORMATION
  Report Type: Spontaneous
  Country: US (occurrence: US)
  Receive Date: 20150819
  Receipt Date: 20151002
  Transmission Date: 20160304
  Serious: No
  Sender: FDA-Public Use
  Company Number: US-BAYER-2015-402601

PATIENT
  Age: 46 Year
  Sex: Female
  Weight: 48.98 kg

DRUGS (2)
  1. MIRENA [Suspect]
     Active Substance: LEVONORGESTREL
     Indication: MENSTRUAL CYCLE MANAGEMENT
     Dosage: 20 MCG/24HR, CONT
     Route: 015
     Dates: start: 20150811
  2. MIRENA [Suspect]
     Active Substance: LEVONORGESTREL
     Indication: MENSTRUAL CYCLE MANAGEMENT
     Dosage: 20 MCG/24HR, CONT
     Route: 015

REACTIONS (3)
  - Off label use [None]
  - Product quality issue [None]
  - Device expulsion [None]

NARRATIVE: CASE EVENT DATE: 20150811
